FAERS Safety Report 6662246-1 (Version None)
Quarter: 2010Q1

REPORT INFORMATION
  Report Type: 
  Country: None (occurrence: None)
  Receive Date: 20100329
  Receipt Date: 20100315
  Transmission Date: 20100710
  Serious: Yes (Hospitalization)
  Sender: FDA-Public Use
  Company Number: RB-03510-2010

PATIENT
  Age: 28 Year
  Sex: Female

DRUGS (1)
  1. SUBOXONE [Suspect]
     Indication: DRUG USE FOR UNKNOWN INDICATION
     Dosage: DOSING DETAILS UNKNOWN UNKNOWN

REACTIONS (3)
  - LOSS OF LIBIDO [None]
  - NAUSEA [None]
  - NEPHROLITHIASIS [None]
